FAERS Safety Report 4803024-5 (Version None)
Quarter: 2005Q4

REPORT INFORMATION
  Report Type: 
  Country: None (occurrence: None)
  Receive Date: 20051013
  Receipt Date: 20050922
  Transmission Date: 20060501
  Serious: Yes (Death)
  Sender: FDA-Public Use
  Company Number: FR_050907190

PATIENT
  Sex: Male

DRUGS (1)
  1. ZYPREXA [Suspect]
     Indication: PSYCHOTIC DISORDER
     Dosage: 15 MG/1 DAY
     Dates: start: 19990101

REACTIONS (5)
  - CATATONIA [None]
  - DRUG ABUSER [None]
  - DRUG INTERACTION [None]
  - DRUG TOXICITY [None]
  - OVERDOSE [None]
